FAERS Safety Report 18005525 (Version 2)
Quarter: 2020Q3

REPORT INFORMATION
  Report Type: Report from Study
  Country: US (occurrence: US)
  Receive Date: 20200709
  Receipt Date: 20200715
  Transmission Date: 20201103
  Serious: Yes (Death, Hospitalization)
  Sender: FDA-Public Use
  Company Number: US-ACTELION-A-NJ2020-206903

PATIENT
  Age: 8 Month
  Sex: Male

DRUGS (6)
  1. DIURIL [CHLOROTHIAZIDE SODIUM] [Concomitant]
     Dosage: UNK
  2. FORMOTEC [Concomitant]
  3. POLY?VI?SOL WITH IRON [Concomitant]
     Active Substance: IRON\VITAMINS
  4. BUDES [Concomitant]
     Active Substance: BUDESONIDE
  5. TRACLEER [Suspect]
     Active Substance: BOSENTAN
     Indication: PRODUCT USED FOR UNKNOWN INDICATION
     Dosage: 32 MG, QD
     Route: 048
     Dates: end: 20200708
  6. GAS RELIEF [Concomitant]
     Active Substance: DIMETHICONE

REACTIONS (2)
  - Death [Fatal]
  - Hospitalisation [Unknown]

NARRATIVE: CASE EVENT DATE: 202007
